FAERS Safety Report 25465993 (Version 2)
Quarter: 2025Q3

REPORT INFORMATION
  Report Type: Report from Study
  Country: CO (occurrence: CO)
  Receive Date: 20250623
  Receipt Date: 20250803
  Transmission Date: 20251021
  Serious: Yes (Hospitalization, Other)
  Sender: ALEXION PHARMACEUTICALS
  Company Number: CO-AstraZeneca-CH-00877886A

PATIENT
  Age: 87 Year
  Sex: Male
  Weight: 74 kg

DRUGS (1)
  1. BREZTRI [Suspect]
     Active Substance: BUDESONIDE\FORMOTEROL\GLYCOPYRROLATE
     Indication: Chronic obstructive pulmonary disease
     Dosage: 160 MICROGRAM, Q12H
     Dates: start: 20250404

REACTIONS (5)
  - Oxygen saturation decreased [Unknown]
  - Somnolence [Unknown]
  - Cough [Unknown]
  - Stenosis [Unknown]
  - Gastrostomy [Recovering/Resolving]

NARRATIVE: CASE EVENT DATE: 20250517
